FAERS Safety Report 21473745 (Version 1)
Quarter: 2022Q4

REPORT INFORMATION
  Report Type: Spontaneous
  Country: US (occurrence: US)
  Receive Date: 20221018
  Receipt Date: 20221018
  Transmission Date: 20230113
  Serious: No
  Sender: FDA-Public Use
  Company Number: US-JNJFOC-20221019125

PATIENT

DRUGS (2)
  1. PEPCID AC [Suspect]
     Active Substance: FAMOTIDINE
     Indication: Product used for unknown indication
     Dosage: USUALLY TOOK ONE IN MORNING AND ONE AT NIGHT
     Route: 048
  2. PEPCID AC [Suspect]
     Active Substance: FAMOTIDINE
     Dosage: TOOK TWO TABLET BEFORE EATING AND AFTER THAT TOOK TWO MORE/TOOK 80 MG OF PRODUCT
     Route: 048
     Dates: start: 20221010

REACTIONS (1)
  - Overdose [Unknown]

NARRATIVE: CASE EVENT DATE: 20221010
